FAERS Safety Report 8259365-5 (Version None)
Quarter: 2012Q2

REPORT INFORMATION
  Report Type: 
  Country: None (occurrence: None)
  Receive Date: 20120404
  Receipt Date: 20120328
  Transmission Date: 20120825
  Serious: Yes (Hospitalization)
  Sender: FDA-Public Use
  Company Number: US-BAYER-2011-091713

PATIENT
  Age: 20 Year
  Sex: Female
  Weight: 54.422 kg

DRUGS (10)
  1. PHENAZOPYRIDINE HCL TAB [Concomitant]
     Dosage: 200 MG, TID
     Dates: start: 20090126
  2. ZOFRAN [Concomitant]
     Dosage: UNK
     Route: 042
     Dates: start: 20090125
  3. DOXYCYCLINE [Concomitant]
  4. YASMIN [Suspect]
     Dosage: UNK
     Dates: start: 20010501, end: 20110101
  5. IBUPROFEN [Concomitant]
  6. MACROBID [Concomitant]
     Dosage: UNK
     Dates: start: 20090125
  7. PERCOCET [Concomitant]
     Dosage: 325 MG, QID
     Route: 048
     Dates: start: 20090126, end: 20090126
  8. FLAGYL [Concomitant]
  9. YASMIN [Suspect]
     Dosage: UNK
     Dates: start: 20030101, end: 20030101
  10. DILAUDID [Concomitant]
     Dosage: UNK
     Route: 042
     Dates: start: 20090125

REACTIONS (9)
  - CHOLECYSTITIS ACUTE [None]
  - PAIN [None]
  - GALLBLADDER DISORDER [None]
  - INJURY [None]
  - EMOTIONAL DISTRESS [None]
  - GENERAL PHYSICAL HEALTH DETERIORATION [None]
  - ANXIETY [None]
  - ANHEDONIA [None]
  - LOWER URINARY TRACT SYMPTOMS [None]
